FAERS Safety Report 21396825 (Version 2)
Quarter: 2022Q4

REPORT INFORMATION
  Report Type: Report from Study
  Country: US (occurrence: US)
  Receive Date: 20220930
  Receipt Date: 20221014
  Transmission Date: 20230113
  Serious: No
  Sender: FDA-Public Use
  Company Number: US-BIOVITRUM-2022US10904

PATIENT
  Sex: Female

DRUGS (1)
  1. KINERET [Suspect]
     Active Substance: ANAKINRA
     Indication: Product used for unknown indication

REACTIONS (5)
  - Musculoskeletal discomfort [Unknown]
  - Limb injury [Unknown]
  - Pain [Unknown]
  - Injection site bruising [Unknown]
  - Therapeutic response decreased [Unknown]
